FAERS Safety Report 12972676 (Version 1)
Quarter: 2016Q4

REPORT INFORMATION
  Report Type: Spontaneous
  Country: US (occurrence: US)
  Receive Date: 20161124
  Receipt Date: 20161124
  Transmission Date: 20170207
  Serious: No
  Sender: FDA-Public Use
  Company Number: US-AMGEN-USASP2016162877

PATIENT
  Age: 67 Year
  Sex: Female

DRUGS (1)
  1. ENBREL [Suspect]
     Active Substance: ETANERCEPT
     Indication: RHEUMATOID ARTHRITIS
     Dosage: 50 MG, QWK
     Route: 065

REACTIONS (10)
  - Aphonia [Unknown]
  - Feeling hot [Recovered/Resolved]
  - Cough [Unknown]
  - Throat irritation [Unknown]
  - Dry skin [Unknown]
  - Underdose [Unknown]
  - Wrong technique in product usage process [Unknown]
  - Erythema [Not Recovered/Not Resolved]
  - Injury associated with device [Unknown]
  - Pruritus [Unknown]

NARRATIVE: CASE EVENT DATE: 201611
